FAERS Safety Report 9698960 (Version 2)
Quarter: 2014Q1

REPORT INFORMATION
  Report Type: Spontaneous
  Country: IT (occurrence: IT)
  Receive Date: 20131120
  Receipt Date: 20140122
  Transmission Date: 20141002
  Serious: Yes (Hospitalization)
  Sender: FDA-Public Use
  Company Number: IT-WATSON-2013-21015

PATIENT
  Age: 75 Year
  Sex: Female

DRUGS (7)
  1. TICLOPIDINE (UNKNOWN) [Suspect]
     Indication: PERIPHERAL ISCHAEMIA
     Dosage: 1 DF, DAILY
     Route: 048
     Dates: start: 20121101, end: 20131019
  2. NIMESULIDE (UNKNOWN) [Suspect]
     Indication: PAIN
     Dosage: 1 DF, PRN
     Route: 048
     Dates: start: 20130801, end: 20131019
  3. VOLTAREN /00372301/ [Suspect]
     Indication: PAIN
     Dosage: 1 DF, PRN
     Route: 048
     Dates: start: 20130108, end: 20131019
  4. TELMISARTAN [Concomitant]
     Indication: PRODUCT USED FOR UNKNOWN INDICATION
     Dosage: 80 MG, UNK
     Route: 048
  5. FUROSEMIDE [Concomitant]
     Indication: PRODUCT USED FOR UNKNOWN INDICATION
     Dosage: 25 MG, UNK
     Route: 048
  6. ATORVASTATIN [Concomitant]
     Indication: PRODUCT USED FOR UNKNOWN INDICATION
     Dosage: 20 MG, UNK
     Route: 048
  7. LERCANIDIPINE [Concomitant]
     Indication: PRODUCT USED FOR UNKNOWN INDICATION
     Dosage: 80 MG, UNK
     Route: 065

REACTIONS (3)
  - Anaemia [Recovering/Resolving]
  - Drug interaction [Recovering/Resolving]
  - Epistaxis [Recovering/Resolving]
